FAERS Safety Report 5798238-4 (Version None)
Quarter: 2008Q3

REPORT INFORMATION
  Report Type: 
  Country: None (occurrence: None)
  Receive Date: 20080702
  Receipt Date: 20080625
  Transmission Date: 20090109
  Serious: Yes (Other)
  Sender: FDA-Public Use
  Company Number: IT-JNJFOC-20071200507

PATIENT
  Age: 43 Year
  Sex: Male

DRUGS (2)
  1. REMICADE [Suspect]
     Route: 042
  2. REMICADE [Suspect]
     Indication: SPONDYLITIS
     Route: 042

REACTIONS (5)
  - CHEST DISCOMFORT [None]
  - INFUSION RELATED REACTION [None]
  - TENDERNESS [None]
  - TREMOR [None]
  - VASOSPASM [None]
